FAERS Safety Report 6420668-8 (Version None)
Quarter: 2009Q4

REPORT INFORMATION
  Report Type: 
  Country: None (occurrence: None)
  Receive Date: 20091027
  Receipt Date: 20060726
  Transmission Date: 20100525
  Serious: Yes (Death)
  Sender: FDA-Public Use
  Company Number: 2009008984

PATIENT
  Age: 20 Year
  Sex: Male
  Weight: 29.4838 kg

DRUGS (1)
  1. ACTIQ [Suspect]
     Indication: MYALGIA
     Dosage: BU
     Route: 002

REACTIONS (2)
  - CARDIAC FAILURE [None]
  - RESPIRATORY FAILURE [None]
